FAERS Safety Report 21706217 (Version 4)
Quarter: 2022Q4

REPORT INFORMATION
  Report Type: Report from Study
  Country: CN (occurrence: None)
  Receive Date: 20221209
  Receipt Date: 20221221
  Transmission Date: 20230113
  Serious: Yes (Death, Life-Threatening, Hospitalization)
  Sender: FDA-Public Use
  Company Number: CN-Eisai Medical Research-EC-2022-129479

PATIENT
  Age: 68 Year
  Sex: Female
  Weight: 50 kg

DRUGS (19)
  1. LENVATINIB [Suspect]
     Active Substance: LENVATINIB
     Indication: Oesophageal cancer metastatic
     Route: 048
     Dates: start: 20221121, end: 20221130
  2. PEMBROLIZUMAB [Suspect]
     Active Substance: PEMBROLIZUMAB
     Indication: Oesophageal cancer metastatic
     Route: 041
     Dates: start: 20221121, end: 20221121
  3. CISPLATIN [Suspect]
     Active Substance: CISPLATIN
     Indication: Oesophageal cancer metastatic
     Dosage: UNKNOWN DOSE
     Route: 042
     Dates: start: 20221121, end: 20221123
  4. FLUOROURACIL [Suspect]
     Active Substance: FLUOROURACIL
     Indication: Oesophageal cancer metastatic
     Dosage: UNKNOWN DOSE
     Route: 042
     Dates: start: 20221121, end: 20221126
  5. CELEBREX [Concomitant]
     Active Substance: CELECOXIB
     Dates: start: 20221028, end: 20221120
  6. DEXAMETHASONE SODIUM PHOSPHATE [Concomitant]
     Active Substance: DEXAMETHASONE SODIUM PHOSPHATE
     Dates: start: 20221121, end: 20221121
  7. METOCLOPRAMIDE HYDROCHLORIDE [Concomitant]
     Active Substance: METOCLOPRAMIDE HYDROCHLORIDE
     Dates: start: 20221121, end: 20221126
  8. PALONOSETRON HYDROCHLORIDE [Concomitant]
     Active Substance: PALONOSETRON HYDROCHLORIDE
     Dates: start: 20221121, end: 20221121
  9. RABEPRAZOLE SODIUM [Concomitant]
     Active Substance: RABEPRAZOLE SODIUM
     Dates: start: 20221121, end: 20221121
  10. DOBELL^S SOLUTION [Concomitant]
     Route: 061
     Dates: start: 20221121, end: 20221130
  11. APREPITANT [Concomitant]
     Active Substance: APREPITANT
     Dates: start: 20221121, end: 20221121
  12. GLYCERIN [Concomitant]
     Active Substance: GLYCERIN
     Dates: start: 20221122, end: 20221122
  13. LACTULOSE [Concomitant]
     Active Substance: LACTULOSE
     Dates: start: 20221122, end: 20221122
  14. MEGESTROL ACETATE [Concomitant]
     Active Substance: MEGESTROL ACETATE
     Dates: start: 20221122, end: 20221130
  15. BUCINNAZINE HYDROCHLORIDE [Concomitant]
     Dates: start: 20221122, end: 20221122
  16. ZOLPIDEM TARTRATE [Concomitant]
     Active Substance: ZOLPIDEM TARTRATE
     Dates: start: 20221125, end: 20221125
  17. GRANULOCYTE-MACROPHAGE COLONY-STIMULATING FACTOR [Concomitant]
     Active Substance: GRANULOCYTE-MACROPHAGE COLONY-STIMULATING FACTOR
     Dates: start: 20221125, end: 20221125
  18. TOPNEUTER [Concomitant]
     Dates: start: 20220128, end: 20221130
  19. TE ER LI [Concomitant]
     Dates: start: 20221121, end: 20221121

REACTIONS (2)
  - Malaise [Not Recovered/Not Resolved]
  - Febrile neutropenia [Fatal]

NARRATIVE: CASE EVENT DATE: 20221128
